FAERS Safety Report 20619877 (Version 13)
Quarter: 2023Q4

REPORT INFORMATION
  Report Type: Report from Study
  Country: DE (occurrence: DE)
  Receive Date: 20220322
  Receipt Date: 20231106
  Transmission Date: 20240109
  Serious: Yes (Hospitalization, Other)
  Sender: FDA-Public Use
  Company Number: DE-IPSEN Group, Research and Development-2022-07357

PATIENT

DRUGS (9)
  1. CABOZANTINIB [Suspect]
     Active Substance: CABOZANTINIB
     Indication: Renal cell carcinoma
     Dosage: 40 MG, QD
     Route: 048
     Dates: start: 20220210, end: 20220314
  2. CABOZANTINIB [Suspect]
     Active Substance: CABOZANTINIB
     Dosage: 20 MG, QD
     Route: 048
     Dates: start: 20220427, end: 20220524
  3. NIVOLUMAB [Suspect]
     Active Substance: NIVOLUMAB
     Indication: Renal cell carcinoma
     Dosage: 240 MG
     Route: 042
     Dates: start: 20220302, end: 20220302
  4. ELIQUIS [Concomitant]
     Active Substance: APIXABAN
     Indication: Arrhythmia supraventricular
     Dosage: 2.5 MG, BID
     Route: 048
     Dates: start: 20220610
  5. LEVOTHYROXINE SODIUM [Concomitant]
     Active Substance: LEVOTHYROXINE SODIUM
     Indication: Hypothyroidism
     Dosage: 0.05 MG, QD
     Route: 048
     Dates: start: 20220318
  6. ISOPTIN [Concomitant]
     Active Substance: VERAPAMIL HYDROCHLORIDE
     Indication: Arrhythmia
     Dosage: 1.5 MG, QD
     Route: 048
     Dates: start: 20000101
  7. BENZTHIAZIDE\TRIAMTERENE [Concomitant]
     Active Substance: BENZTHIAZIDE\TRIAMTERENE
     Indication: Diuretic therapy
     Dosage: 50 MG, QD
     Route: 048
     Dates: start: 20000101
  8. AMOXICILLIN\CLAVULANATE POTASSIUM [Concomitant]
     Active Substance: AMOXICILLIN\CLAVULANATE POTASSIUM
     Indication: Antibiotic therapy
     Dosage: 500 MG, BID
     Route: 048
     Dates: start: 20220610, end: 20220615
  9. MARCUMAR [Concomitant]
     Active Substance: PHENPROCOUMON
     Indication: Arrhythmia supraventricular
     Dosage: UNK UNK, QD
     Route: 048
     Dates: start: 20000101

REACTIONS (9)
  - Peripheral sensory neuropathy [Not Recovered/Not Resolved]
  - General physical health deterioration [Recovered/Resolved]
  - General physical health deterioration [Recovered/Resolved]
  - Cough [Not Recovered/Not Resolved]
  - Hypothyroidism [Unknown]
  - Chills [Recovered/Resolved]
  - Anal inflammation [Recovered/Resolved]
  - Stomatitis [Recovered/Resolved]
  - Coronavirus infection [Recovered/Resolved]

NARRATIVE: CASE EVENT DATE: 20220301
